FAERS Safety Report 22069910 (Version 1)
Quarter: 2023Q1

REPORT INFORMATION
  Report Type: Spontaneous
  Country: US (occurrence: US)
  Receive Date: 20230307
  Receipt Date: 20230307
  Transmission Date: 20230417
  Serious: No
  Sender: FDA-Public Use
  Company Number: US-AMNEAL PHARMACEUTICALS-2022-AMRX-01328

PATIENT
  Sex: Female

DRUGS (1)
  1. RYTARY [Suspect]
     Active Substance: CARBIDOPA\LEVODOPA
     Indication: Parkinson^s disease
     Dosage: 9 CAPSULES (3 CAPSULES AT 8 AM, 2 CAPSULE AT 12 PM, 2 CAPSULE AT 4 PM AND 2 CAPSULE AT 8 PM )
     Route: 048

REACTIONS (1)
  - Hypotension [Unknown]
